FAERS Safety Report 7503556-5 (Version None)
Quarter: 2011Q2

REPORT INFORMATION
  Report Type: 
  Country: None (occurrence: None)
  Receive Date: 20110525
  Receipt Date: 20110523
  Transmission Date: 20111010
  Serious: Yes (Death)
  Sender: FDA-Public Use
  Company Number: DE-SANOFI-AVENTIS-2011SA031874

PATIENT

DRUGS (1)
  1. TAXOTERE [Suspect]
     Route: 041
     Dates: start: 20110101, end: 20110101

REACTIONS (2)
  - HEPATIC FAILURE [None]
  - FEBRILE NEUTROPENIA [None]
